FAERS Safety Report 12428898 (Version 8)
Quarter: 2017Q1

REPORT INFORMATION
  Report Type: Report from Study
  Country: GB (occurrence: GB)
  Receive Date: 20160602
  Receipt Date: 20170131
  Transmission Date: 20170428
  Serious: Yes (Other)
  Sender: FDA-Public Use
  Company Number: GB-JNJFOC-20160524733

PATIENT
  Age: 70 Year
  Sex: Male
  Weight: 96 kg

DRUGS (13)
  1. NOVORAPID [Concomitant]
     Active Substance: INSULIN ASPART
     Dosage: FREQUENCY IS AS DIRECTED.DOSE: 100 UNITS/ MML, 3 ML PRE FILLED PEN??AS PER BODY MASS (BM)
     Route: 058
     Dates: start: 20050912
  2. ASPIRIN. [Concomitant]
     Active Substance: ASPIRIN
     Dosage: MORNING TIME
     Route: 048
     Dates: start: 20001116
  3. METFORMIN HYDROCHLORIDE. [Concomitant]
     Active Substance: METFORMIN HYDROCHLORIDE
     Route: 048
  4. PINDOLOL. [Concomitant]
     Active Substance: PINDOLOL
     Route: 048
     Dates: start: 20011121
  5. CANAGLIFLOZIN [Suspect]
     Active Substance: CANAGLIFLOZIN
     Indication: TYPE 2 DIABETES MELLITUS
     Dosage: DOSE: 100 OR 300 MG
     Route: 048
     Dates: start: 20100826, end: 20160630
  6. ATORVASTATIN [Concomitant]
     Active Substance: ATORVASTATIN
     Route: 048
     Dates: start: 20140507
  7. METFORMIN HYDROCHLORIDE. [Concomitant]
     Active Substance: METFORMIN HYDROCHLORIDE
     Dosage: TWO TABLETS TWICE DAILY
     Route: 048
     Dates: start: 20060407
  8. TAMSULOSIN HYDROCHLORIDE. [Concomitant]
     Active Substance: TAMSULOSIN HYDROCHLORIDE
     Route: 048
     Dates: start: 20150226
  9. LANSOPRAZOLE. [Concomitant]
     Active Substance: LANSOPRAZOLE
     Route: 048
     Dates: start: 20110824
  10. LEVEMIR [Concomitant]
     Active Substance: INSULIN DETEMIR
     Dosage: FREQUENCY IS AS DIRECTED.DOSE: 100 UNITS/ MML, 3 ML PRE FILLED PEN??AS PER BODY MASS (BM)
     Route: 058
     Dates: start: 20050912
  11. LISINOPRIL. [Concomitant]
     Active Substance: LISINOPRIL
     Route: 048
     Dates: start: 20011212
  12. CANAGLIFLOZIN [Suspect]
     Active Substance: CANAGLIFLOZIN
     Route: 048
  13. ESCITALOPRAM [Concomitant]
     Active Substance: ESCITALOPRAM OXALATE
     Route: 048
     Dates: start: 20051111

REACTIONS (1)
  - Bladder cancer [Recovering/Resolving]

NARRATIVE: CASE EVENT DATE: 20160418
